FAERS Safety Report 5853389-0 (Version None)
Quarter: 2008Q3

REPORT INFORMATION
  Report Type: 
  Country: None (occurrence: None)
  Receive Date: 20080821
  Receipt Date: 20080812
  Transmission Date: 20090109
  Serious: Yes (Other)
  Sender: FDA-Public Use
  Company Number: GB-PFIZER INC-2008067617

PATIENT
  Age: 47 Year
  Sex: Male

DRUGS (3)
  1. CABERGOLINE [Suspect]
     Indication: PARKINSON'S DISEASE
     Route: 048
  2. CO-BENELDOPA [Concomitant]
     Indication: PARKINSON'S DISEASE
     Route: 048
  3. STALEVO 100 [Concomitant]
     Indication: PARKINSON'S DISEASE
     Route: 048

REACTIONS (2)
  - GAMBLING [None]
  - OBSESSIVE-COMPULSIVE PERSONALITY DISORDER [None]
